FAERS Safety Report 11260461 (Version 2)
Quarter: 2015Q3

REPORT INFORMATION
  Report Type: Spontaneous
  Country: RU (occurrence: RU)
  Receive Date: 20150710
  Receipt Date: 20150710
  Transmission Date: 20151125
  Serious: Yes (Other)
  Sender: FDA-Public Use
  Company Number: RU-BRISTOL-MYERS SQUIBB COMPANY-BMS-2015-042650

PATIENT
  Age: 53 Year
  Sex: Male

DRUGS (1)
  1. CETUXIMAB [Suspect]
     Active Substance: CETUXIMAB
     Indication: COLON CANCER
     Dosage: 500 MG, QWK
     Route: 065
     Dates: start: 201301, end: 201401

REACTIONS (4)
  - Pancreatic disorder [Unknown]
  - Splenomegaly [Unknown]
  - Large intestine polyp [Unknown]
  - Hepatomegaly [Unknown]

NARRATIVE: CASE EVENT DATE: 201308
